FAERS Safety Report 9604017 (Version 2)
Quarter: 2013Q4

REPORT INFORMATION
  Report Type: Spontaneous
  Country: US (occurrence: US)
  Receive Date: 20131008
  Receipt Date: 20131211
  Transmission Date: 20140711
  Serious: No
  Sender: FDA-Public Use
  Company Number: US-B.I. PHARMACEUTICALS,INC./RIDGEFIELD-2013-BI-30749BP

PATIENT
  Age: 72 Year
  Sex: Male
  Weight: 93 kg

DRUGS (2)
  1. SPIRIVA [Suspect]
     Indication: SURGERY
     Dosage: 18 MCG
     Route: 055
     Dates: start: 20130925
  2. PROAIR HFA [Concomitant]
     Indication: LUNG NEOPLASM MALIGNANT
     Route: 055
     Dates: start: 2000

REACTIONS (2)
  - Dyspnoea [Not Recovered/Not Resolved]
  - Off label use [Not Recovered/Not Resolved]
